FAERS Safety Report 4476896-4 (Version None)
Quarter: 2004Q4

REPORT INFORMATION
  Report Type: 
  Country: None (occurrence: None)
  Receive Date: 20041013
  Receipt Date: 20040927
  Transmission Date: 20050328
  Serious: Yes (Life-Threatening, Hospitalization)
  Sender: FDA-Public Use
  Company Number: DSA_25066_2004

PATIENT
  Age: 56 Year
  Sex: Male

DRUGS (7)
  1. DILTIAZEM [Suspect]
     Dosage: 180 M G Q DAY PO
     Route: 048
     Dates: start: 20040715, end: 20040801
  2. INSULIN [Concomitant]
  3. FRUSEMIDE [Concomitant]
  4. SPIRONOLACTONE [Concomitant]
  5. ATENOLOL [Concomitant]
  6. ATORVASTATIN CALCIUM [Concomitant]
  7. ENALAPRIL MALEATE [Concomitant]

REACTIONS (3)
  - BRADYCARDIA [None]
  - CIRCULATORY COLLAPSE [None]
  - FALL [None]
